FAERS Safety Report 6440315-9 (Version None)
Quarter: 2009Q4

REPORT INFORMATION
  Report Type: 
  Country: None (occurrence: None)
  Receive Date: 20091113
  Receipt Date: 20091102
  Transmission Date: 20100525
  Serious: Yes (Hospitalization, Other)
  Sender: FDA-Public Use
  Company Number: US-PFIZER INC-2009280725

PATIENT
  Sex: Male
  Weight: 77.11 kg

DRUGS (9)
  1. SUTENT [Suspect]
     Indication: GLIOBLASTOMA
     Dosage: 12.5 MG, 2X/DAY
     Route: 048
     Dates: start: 20090501
  2. AVASTIN [Suspect]
     Indication: NEOPLASM MALIGNANT
     Route: 042
  3. IRINOTECAN HCL [Suspect]
     Indication: NEOPLASM MALIGNANT
     Route: 042
  4. NEXIUM [Concomitant]
     Route: 048
  5. BISOPROLOL [Concomitant]
     Indication: BLOOD PRESSURE
     Route: 048
  6. AMLODIPINE BESILATE [Concomitant]
     Indication: BLOOD PRESSURE
     Route: 048
  7. ZETIA [Concomitant]
     Route: 048
  8. MINOCYCLINE [Concomitant]
     Route: 048
  9. LEVETIRACETAM [Concomitant]
     Route: 048

REACTIONS (2)
  - RENAL FAILURE [None]
  - ULCER HAEMORRHAGE [None]
